FAERS Safety Report 5355413-0 (Version None)
Quarter: 2007Q2

REPORT INFORMATION
  Report Type: 
  Country: None (occurrence: None)
  Receive Date: 20070611
  Receipt Date: 20070611
  Transmission Date: 20071010
  Serious: Yes (Hospitalization)
  Sender: FDA-Public Use
  Company Number: None

PATIENT
  Age: 79 Year
  Sex: Male

DRUGS (2)
  1. GALANTAMINE HYDROBROMIDE [Suspect]
     Indication: DEMENTIA ALZHEIMER'S TYPE
     Dosage: 24MG DAILY PO
     Route: 048
  2. TERAZOSIN HCL [Suspect]
     Dosage: 10MG QHS PO
     Route: 048

REACTIONS (3)
  - BRADYCARDIA [None]
  - DIZZINESS POSTURAL [None]
  - SYNCOPE [None]
